FAERS Safety Report 7650520-1 (Version None)
Quarter: 2011Q3

REPORT INFORMATION
  Report Type: 
  Country: None (occurrence: None)
  Receive Date: 20110802
  Receipt Date: 20110720
  Transmission Date: 20111222
  Serious: Yes (Hospitalization)
  Sender: FDA-Public Use
  Company Number: US-GLAXOSMITHKLINE-B0696406A

PATIENT
  Age: 44 Year
  Sex: Male
  Weight: 106.8 kg

DRUGS (1)
  1. AVANDIA [Suspect]
     Indication: DIABETES MELLITUS
     Dosage: 2MG TWICE PER DAY
     Route: 048

REACTIONS (7)
  - HEART VALVE INCOMPETENCE [None]
  - CARDIOMYOPATHY [None]
  - VENTRICULAR HYPOKINESIA [None]
  - DYSPNOEA [None]
  - CARDIOVASCULAR DISORDER [None]
  - CHEST PAIN [None]
  - DIABETES MELLITUS [None]
